FAERS Safety Report 8477523-1 (Version None)
Quarter: 2012Q2

REPORT INFORMATION
  Report Type: 
  Country: None (occurrence: None)
  Receive Date: 20120629
  Receipt Date: 20120626
  Transmission Date: 20120825
  Serious: Yes (Other)
  Sender: FDA-Public Use
  Company Number: PHHY2011CA78020

PATIENT
  Sex: Male

DRUGS (3)
  1. CHEMOTHERAPEUTICS [Concomitant]
  2. ZOMETA [Suspect]
     Indication: RENAL CELL CARCINOMA
     Dosage: 3.5 MG, EVERY 8 WEEKS
     Route: 042
     Dates: start: 20101115
  3. ZOMETA [Suspect]
     Dosage: 4 MG, EVERY 8 WEEKS
     Route: 042

REACTIONS (5)
  - VASCULAR RUPTURE [None]
  - POOR VENOUS ACCESS [None]
  - WHITE BLOOD CELL COUNT DECREASED [None]
  - MOVEMENT DISORDER [None]
  - HYPOAESTHESIA [None]
